FAERS Safety Report 5141468-5 (Version None)
Quarter: 2006Q4

REPORT INFORMATION
  Report Type: 
  Country: None (occurrence: None)
  Receive Date: 20061101
  Receipt Date: 20061019
  Transmission Date: 20070319
  Serious: Yes (Hospitalization)
  Sender: FDA-Public Use
  Company Number: US-ROCHE-468301

PATIENT
  Age: 18 Year
  Sex: Male
  Weight: 74.8 kg

DRUGS (2)
  1. ACCUTANE [Suspect]
     Indication: ACNE
     Route: 048
     Dates: start: 20030915, end: 20040115
  2. ACCUTANE [Suspect]
     Route: 048
     Dates: start: 20041215, end: 20050315

REACTIONS (2)
  - HEPATITIS TOXIC [None]
  - PYREXIA [None]
